FAERS Safety Report 7529905-X (Version None)
Quarter: 2011Q2

REPORT INFORMATION
  Report Type: 
  Country: None (occurrence: None)
  Receive Date: 20110520
  Receipt Date: 20100429
  Transmission Date: 20111010
  Serious: Yes (Other)
  Sender: FDA-Public Use
  Company Number: 2010BH008204

PATIENT
  Sex: Female

DRUGS (1)
  1. DOPAMINE HCL IN 5% DEXTROSE [Suspect]
     Indication: PRODUCT USED FOR UNKNOWN INDICATION
     Dosage: ;CONTINUOUS;IV
     Route: 042

REACTIONS (2)
  - DEVICE LEAKAGE [None]
  - BLOOD PRESSURE SYSTOLIC DECREASED [None]
